FAERS Safety Report 13145614 (Version 1)
Quarter: 2017Q1

REPORT INFORMATION
  Report Type: Report from Study
  Country: US (occurrence: US)
  Receive Date: 20170124
  Receipt Date: 20170124
  Transmission Date: 20170428
  Serious: Yes (Hospitalization)
  Sender: FDA-Public Use
  Company Number: US-ACTELION-A-NJ2017-148714

PATIENT
  Age: 84 Year
  Sex: Female

DRUGS (1)
  1. TRACLEER [Suspect]
     Active Substance: BOSENTAN
     Indication: PULMONARY ARTERIAL HYPERTENSION
     Dosage: 62.5 MG, BID
     Route: 048
     Dates: start: 20091113

REACTIONS (6)
  - Chronic obstructive pulmonary disease [Unknown]
  - Cardiac failure chronic [Unknown]
  - Bronchitis [Unknown]
  - Escherichia infection [Unknown]
  - Palpitations [Unknown]
  - Asthma [Unknown]
